FAERS Safety Report 5914183-5 (Version None)
Quarter: 2008Q4

REPORT INFORMATION
  Report Type: 
  Country: None (occurrence: None)
  Receive Date: 20081009
  Receipt Date: 20080929
  Transmission Date: 20090506
  Serious: Yes (Hospitalization, Other)
  Sender: FDA-Public Use
  Company Number: US-ELI_LILLY_AND_COMPANY-US200809006460

PATIENT
  Sex: Female

DRUGS (3)
  1. CYMBALTA [Suspect]
     Indication: DEPRESSION
     Dosage: 1 D/F, UNK
     Dates: start: 20080108, end: 20080109
  2. LOESTRIN 1.5/30 [Concomitant]
     Indication: HAEMORRHAGE
     Dates: end: 20080110
  3. XANAX [Concomitant]
     Dates: start: 20071226, end: 20080110

REACTIONS (6)
  - ABDOMINAL SYMPTOM [None]
  - CHEST PAIN [None]
  - GALLBLADDER OPERATION [None]
  - MYALGIA [None]
  - PYREXIA [None]
  - TREMOR [None]
